FAERS Safety Report 18484555 (Version 1)
Quarter: 2020Q4

REPORT INFORMATION
  Report Type: Other
  Country: CA (occurrence: CA)
  Receive Date: 20201110
  Receipt Date: 20201110
  Transmission Date: 20210114
  Serious: Yes (Death, Other)
  Sender: FDA-Public Use
  Company Number: CA-ACCORD-207879

PATIENT
  Age: 20 Month
  Sex: Male

DRUGS (8)
  1. PROCYTOX [Suspect]
     Active Substance: CYCLOPHOSPHAMIDE
     Indication: ATYPICAL TERATOID/RHABDOID TUMOUR OF CNS
     Dosage: 60 MILLIGRAM/KILOGRAM
  2. ETOPOSIDE. [Suspect]
     Active Substance: ETOPOSIDE
     Indication: ATYPICAL TERATOID/RHABDOID TUMOUR OF CNS
     Dosage: 2.5 MG/KG
  3. FILGRASTIM/GRANULOCYTE COLONY STIMULATING/LENOGRASTIM [Suspect]
     Active Substance: GRANULOCYTE COLONY-STIMULATING FACTOR NOS
     Indication: PROPHYLAXIS
     Dosage: 5 MICROGRAM/KILOGRAM
  4. MICAFUNGIN. [Concomitant]
     Active Substance: MICAFUNGIN SODIUM
     Indication: HEPATIC CANDIDIASIS
     Dosage: UNK
  5. GRANULOCYTE COLONY STIMULATING [Suspect]
     Active Substance: GRANULOCYTE COLONY-STIMULATING FACTOR NOS
     Indication: PROPHYLAXIS
     Dosage: 5 MICROGRAM/KG
  6. METHOTREXATE. [Suspect]
     Active Substance: METHOTREXATE
     Indication: ATYPICAL TERATOID/RHABDOID TUMOUR OF CNS
     Route: 042
  7. CISPLATIN. [Suspect]
     Active Substance: CISPLATIN
     Indication: ATYPICAL TERATOID/RHABDOID TUMOUR OF CNS
     Dosage: 3.5 MG/KG
     Route: 042
  8. VINCRISTINE [Suspect]
     Active Substance: VINCRISTINE
     Indication: ATYPICAL TERATOID/RHABDOID TUMOUR OF CNS
     Dosage: 0.05 MILLIGRAM/KILOGRAM

REACTIONS (15)
  - Cystitis haemorrhagic [Fatal]
  - Rhinorrhoea [Fatal]
  - Hepatic candidiasis [Fatal]
  - Abdominal discomfort [Fatal]
  - Diarrhoea [Fatal]
  - Neoplasm progression [Fatal]
  - Pyrexia [Fatal]
  - Adenoviral hepatitis [Fatal]
  - Hypotension [Fatal]
  - Hepatic necrosis [Fatal]
  - Hypogammaglobulinaemia [Fatal]
  - Adenovirus infection [Fatal]
  - Neutropenia [Fatal]
  - Tachycardia [Fatal]
  - Off label use [Unknown]
